FAERS Safety Report 11635801 (Version 1)
Quarter: 2015Q4

REPORT INFORMATION
  Report Type: Spontaneous
  Country: US (occurrence: US)
  Receive Date: 20151016
  Receipt Date: 20151016
  Transmission Date: 20160304
  Serious: No
  Sender: FDA-Public Use
  Company Number: US-PFIZER INC-2015344252

PATIENT
  Age: 74 Year
  Sex: Female
  Weight: 58 kg

DRUGS (1)
  1. PREMARIN [Suspect]
     Active Substance: ESTROGENS, CONJUGATED
     Indication: HORMONE REPLACEMENT THERAPY
     Dosage: 0.925, SHE TOOK REGULARLY IN THE MORNING, 1X/DAY
     Route: 048
     Dates: end: 20151011

REACTIONS (3)
  - Liver disorder [Unknown]
  - Hepatic pain [Unknown]
  - Bile output increased [Unknown]
